FAERS Safety Report 4691223-5 (Version None)
Quarter: 2005Q2

REPORT INFORMATION
  Report Type: 
  Country: None (occurrence: None)
  Receive Date: 20050614
  Receipt Date: 20050601
  Transmission Date: 20051028
  Serious: Yes (Other)
  Sender: FDA-Public Use
  Company Number: 2004081765

PATIENT
  Age: 28 Year
  Sex: Male

DRUGS (6)
  1. SULPERAZON (SULBACTAM, CEFOPERAZONE) [Suspect]
     Indication: ILL-DEFINED DISORDER
  2. TACROLIMUS (TACROLIMUS) [Concomitant]
  3. MIZORIBINE (MIZORIBINE) [Concomitant]
  4. BASILIXIMAB (BASILIXIMAB) [Concomitant]
  5. CORTICOSTEROID NOS (CORTICOSTEROID NOS) [Concomitant]
  6. FAMOTIDINE [Concomitant]

REACTIONS (3)
  - CARDIAC DISORDER [None]
  - HEPATIC CONGESTION [None]
  - INTERSTITIAL LUNG DISEASE [None]
